FAERS Safety Report 4959803-7 (Version None)
Quarter: 2006Q1

REPORT INFORMATION
  Report Type: 
  Country: None (occurrence: None)
  Receive Date: 20060324
  Receipt Date: 20060317
  Transmission Date: 20060701
  Serious: Yes (Other)
  Sender: FDA-Public Use
  Company Number: 001-0981-M0008019

PATIENT
  Age: 71 Year
  Sex: Female
  Weight: 65.318 kg

DRUGS (8)
  1. LIPITOR [Suspect]
     Indication: BLOOD CHOLESTEROL INCREASED
     Dosage: 10 MG (DAILY)
     Dates: start: 19990401, end: 20060216
  2. LIPITOR [Suspect]
     Indication: BLOOD TRIGLYCERIDES
     Dosage: 10 MG (DAILY)
     Dates: start: 19990401, end: 20060216
  3. TENORMIN [Concomitant]
  4. PLENDIL [Concomitant]
  5. PREMARIN [Concomitant]
  6. NORVASC [Concomitant]
  7. ZOLOFT [Concomitant]
  8. MULTIVITAMIN [Concomitant]

REACTIONS (4)
  - HEPATIC CYST [None]
  - HYPOTONIA [None]
  - LIVER FUNCTION TEST ABNORMAL [None]
  - SENSORY DISTURBANCE [None]
